FAERS Safety Report 10518186 (Version 2)
Quarter: 2014Q4

REPORT INFORMATION
  Report Type: Spontaneous
  Country: JP (occurrence: JP)
  Receive Date: 20141015
  Receipt Date: 20141015
  Transmission Date: 20150528
  Serious: Yes (Other)
  Sender: FDA-Public Use
  Company Number: JP-ROCHE-1445540

PATIENT
  Age: 73 Year
  Sex: Female
  Weight: 50 kg

DRUGS (5)
  1. BONVIVA [Suspect]
     Active Substance: IBANDRONATE SODIUM
     Indication: OSTEOPOROSIS
     Route: 042
     Dates: start: 20140303, end: 20140623
  2. MUCOSTA [Concomitant]
     Active Substance: REBAMIPIDE
     Route: 048
     Dates: start: 20131105, end: 20131125
  3. EDIROL [Suspect]
     Active Substance: ELDECALCITOL
     Indication: OSTEOPOROSIS
     Route: 048
     Dates: start: 20131118, end: 20140728
  4. LIVALO [Suspect]
     Active Substance: PITAVASTATIN CALCIUM
     Indication: HYPERLIPIDAEMIA
     Dosage: DOSAGE IS UNCERTAIN.
     Route: 048
  5. CELECOX [Concomitant]
     Active Substance: CELECOXIB
     Route: 048
     Dates: start: 20131111, end: 20131125

REACTIONS (5)
  - Osteoarthritis [Unknown]
  - Skin exfoliation [Unknown]
  - Hair growth abnormal [Unknown]
  - Nail discolouration [Unknown]
  - Renal impairment [Recovered/Resolved]

NARRATIVE: CASE EVENT DATE: 20140331
